FAERS Safety Report 23676821 (Version 1)
Quarter: 2024Q1

REPORT INFORMATION
  Report Type: Spontaneous
  Country: CN (occurrence: CN)
  Receive Date: 20240327
  Receipt Date: 20240327
  Transmission Date: 20240409
  Serious: Yes (Death, Life-Threatening, Hospitalization)
  Sender: FDA-Public Use
  Company Number: CN-STRIDES ARCOLAB LIMITED-2024SP003434

PATIENT
  Age: 18 Year
  Sex: Female

DRUGS (4)
  1. PROPAFENONE [Suspect]
     Active Substance: PROPAFENONE
     Indication: Ventricular extrasystoles
     Dosage: UNK
     Route: 065
  2. PROPAFENONE [Suspect]
     Active Substance: PROPAFENONE
     Dosage: UNK, LARGE DOSE
     Route: 048
  3. DIAZEPAM [Suspect]
     Active Substance: DIAZEPAM
     Indication: Depression
     Dosage: UNK
     Route: 065
  4. DIAZEPAM [Suspect]
     Active Substance: DIAZEPAM
     Dosage: UNK, LARGE DOSE
     Route: 048

REACTIONS (18)
  - Cardiac arrest [Fatal]
  - Toxicity to various agents [Fatal]
  - Intentional overdose [Fatal]
  - Haemodynamic instability [Fatal]
  - Completed suicide [Fatal]
  - Metabolic acidosis [Fatal]
  - Respiratory alkalosis [Unknown]
  - Left ventricular dysfunction [Unknown]
  - Atrioventricular block [Unknown]
  - Coma [Unknown]
  - Electrocardiogram P wave abnormal [Unknown]
  - Electrocardiogram QRS complex prolonged [Unknown]
  - Electrocardiogram QT prolonged [Unknown]
  - Bundle branch block right [Unknown]
  - Seizure [Unknown]
  - Vomiting [Unknown]
  - Syncope [Unknown]
  - Off label use [Unknown]
